FAERS Safety Report 4450120-0 (Version None)
Quarter: 2004Q3

REPORT INFORMATION
  Report Type: 
  Country: None (occurrence: None)
  Receive Date: 20040802
  Receipt Date: 20040212
  Transmission Date: 20050211
  Serious: Yes (Life-Threatening, Hospitalization)
  Sender: FDA-Public Use
  Company Number: US-SHR-03-016822

PATIENT
  Age: 90 Year
  Sex: Female
  Weight: 77.1 kg

DRUGS (1)
  1. MAGNEVIST [Suspect]
     Indication: COMPUTERISED TOMOGRAM
     Dosage: 15 ML, 1 DOSE, INTRAVENOUS
     Route: 042
     Dates: start: 20031031, end: 20031031

REACTIONS (5)
  - DIZZINESS [None]
  - DROOLING [None]
  - DYSPNOEA [None]
  - NAUSEA [None]
  - SYNCOPE [None]
